FAERS Safety Report 15881768 (Version 1)
Quarter: 2019Q1

REPORT INFORMATION
  Report Type: Spontaneous
  Country: US (occurrence: US)
  Receive Date: 20190128
  Receipt Date: 20190128
  Transmission Date: 20190417
  Serious: No
  Sender: FDA-Public Use
  Company Number: US-SA-2019SA020831

PATIENT
  Age: 10 Year
  Sex: Male
  Weight: 43.82 kg

DRUGS (1)
  1. FABRAZYME [Suspect]
     Active Substance: AGALSIDASE BETA
     Indication: FABRY^S DISEASE
     Dosage: 1.0 MG/KG, QOW
     Route: 042
     Dates: start: 20181024

REACTIONS (1)
  - Flushing [Unknown]
